FAERS Safety Report 10775439 (Version 4)
Quarter: 2015Q2

REPORT INFORMATION
  Report Type: Spontaneous
  Country: US (occurrence: None)
  Receive Date: 20150205
  Receipt Date: 20150402
  Transmission Date: 20150821
  Serious: Yes (Hospitalization, Other)
  Sender: FDA-Public Use
  Company Number: ADR-2015-00237

PATIENT
  Age: 19 Year
  Sex: Male

DRUGS (2)
  1. ORAL BACLOFEN [Suspect]
     Active Substance: BACLOFEN
  2. BACLOFEN INTRATHECAL (2000 MCG/ML) [Suspect]
     Active Substance: BACLOFEN
     Indication: MUSCLE SPASTICITY

REACTIONS (14)
  - Musculoskeletal stiffness [None]
  - Muscle spasticity [None]
  - Drug withdrawal syndrome [None]
  - Pyrexia [None]
  - Mental disorder [None]
  - White blood cell count increased [None]
  - Sleep disorder [None]
  - Malaise [None]
  - Mental status changes [None]
  - Delusion [None]
  - Abnormal behaviour [None]
  - Drug ineffective [None]
  - Muscle rigidity [None]
  - Device computer issue [None]

NARRATIVE: CASE EVENT DATE: 20150124
